FAERS Safety Report 23318272 (Version 2)
Quarter: 2024Q1

REPORT INFORMATION
  Report Type: Spontaneous
  Country: FR (occurrence: FR)
  Receive Date: 20231220
  Receipt Date: 20240122
  Transmission Date: 20240409
  Serious: Yes (Other)
  Sender: FDA-Public Use
  Company Number: None

PATIENT
  Age: 60 Year
  Sex: Female

DRUGS (18)
  1. RISPERDAL [Suspect]
     Active Substance: RISPERIDONE
     Indication: Product used for unknown indication
     Route: 048
     Dates: start: 20231124
  2. RISPERDAL [Suspect]
     Active Substance: RISPERIDONE
     Indication: Wrong patient
  3. CYAMEMAZINE [Suspect]
     Active Substance: CYAMEMAZINE
     Indication: Wrong patient
     Route: 048
     Dates: start: 20231124
  4. BROMAZEPAM [Suspect]
     Active Substance: BROMAZEPAM
     Indication: Wrong patient
     Route: 048
     Dates: start: 20231124
  5. BROMAZEPAM [Suspect]
     Active Substance: BROMAZEPAM
     Indication: Product used for unknown indication
  6. LEVOTHYROXINE [Suspect]
     Active Substance: LEVOTHYROXINE\LEVOTHYROXINE SODIUM
     Indication: Product used for unknown indication
     Route: 065
  7. EUPANTOL [Suspect]
     Active Substance: PANTOPRAZOLE SODIUM
     Indication: Product used for unknown indication
     Route: 065
  8. CHOLECALCIFEROL [Suspect]
     Active Substance: CHOLECALCIFEROL
     Indication: Product used for unknown indication
     Route: 065
  9. VIMPAT [Suspect]
     Active Substance: LACOSAMIDE
     Indication: Product used for unknown indication
     Route: 065
  10. VITAMIN B12 [Suspect]
     Active Substance: CYANOCOBALAMIN
     Indication: Product used for unknown indication
     Route: 065
  11. LIPTRUZET [Suspect]
     Active Substance: ATORVASTATIN CALCIUM\EZETIMIBE
     Indication: Product used for unknown indication
     Dosage: 10 MILLIGRAM, QD
     Route: 065
  12. METRONIDAZOLE [Suspect]
     Active Substance: METRONIDAZOLE
     Indication: Product used for unknown indication
     Route: 065
  13. ATENOLOL [Suspect]
     Active Substance: ATENOLOL
     Indication: Product used for unknown indication
     Route: 065
  14. KARDEGIC [Suspect]
     Active Substance: ASPIRIN DL-LYSINE
     Indication: Product used for unknown indication
     Route: 065
  15. XYLENE [Suspect]
     Active Substance: XYLENE
     Indication: Product used for unknown indication
     Dosage: MORNING IN RIGHT EAR
     Route: 065
  16. METFORMIN [Suspect]
     Active Substance: METFORMIN HYDROCHLORIDE
     Indication: Product used for unknown indication
     Route: 065
  17. AMLODIPINE BESYLATE [Suspect]
     Active Substance: AMLODIPINE BESYLATE
     Indication: Product used for unknown indication
     Route: 065
  18. CANDESARTAN [Suspect]
     Active Substance: CANDESARTAN
     Indication: Product used for unknown indication
     Route: 065
     Dates: start: 20231124

REACTIONS (2)
  - Wrong patient [Recovered/Resolved]
  - Somnolence [Recovered/Resolved]

NARRATIVE: CASE EVENT DATE: 20231124
